FAERS Safety Report 18822724 (Version 1)
Quarter: 2021Q1

REPORT INFORMATION
  Report Type: Report from Study
  Country: MX (occurrence: MX)
  Receive Date: 20210202
  Receipt Date: 20210202
  Transmission Date: 20210419
  Serious: Yes (Hospitalization, Other)
  Sender: FDA-Public Use
  Company Number: NVSC2021MX022262

PATIENT
  Age: 71 Year
  Sex: Female
  Weight: 64 kg

DRUGS (15)
  1. FENOFIBRATE. [Concomitant]
     Active Substance: FENOFIBRATE
     Indication: DYSLIPIDAEMIA
     Dosage: 1 DF, QD, STARTED 5 YEARS AGO
     Route: 048
     Dates: end: 202010
  2. ESPAVEN [Concomitant]
     Indication: PRODUCT USED FOR UNKNOWN INDICATION
     Dosage: UNK
     Route: 065
  3. DIAMICRON MR [Concomitant]
     Active Substance: GLICLAZIDE
     Indication: DIABETES MELLITUS
     Dosage: 1 DF, QD, STARTED 5 YEARS AGO
     Route: 065
     Dates: end: 202010
  4. PREDIAL PLUS [Concomitant]
     Indication: DIABETES MELLITUS
     Dosage: 2 DF, QD, STARTED 5 YEARS AGO
     Route: 048
     Dates: end: 202010
  5. INHIBITRON [Concomitant]
     Indication: PROPHYLAXIS
     Dosage: 1 DF, QD
     Route: 048
  6. CO?DIOVAN [Suspect]
     Active Substance: HYDROCHLOROTHIAZIDE\VALSARTAN
     Indication: HYPERTENSION
     Dosage: 1 DF, QD, STARTED 5 YEARS AGO
     Route: 048
     Dates: end: 202012
  7. CO?DIOVAN [Suspect]
     Active Substance: HYDROCHLOROTHIAZIDE\VALSARTAN
     Dosage: 1 DF, QD, STARTED IN 2021
     Route: 048
  8. EUTIROX [Concomitant]
     Active Substance: LEVOTHYROXINE SODIUM
     Indication: THYROID DISORDER
     Dosage: 1 DF, ON AN EMPTY STOMACH
     Route: 048
  9. TRAYENTA DUO [Concomitant]
     Active Substance: LINAGLIPTIN\METFORMIN HYDROCHLORIDE
     Indication: DIABETES MELLITUS
     Dosage: 1 DF, Q12H
     Route: 048
     Dates: start: 202010
  10. GAAP [Concomitant]
     Active Substance: LATANOPROST
     Indication: GLAUCOMA
     Dosage: 1 DF, 1 IN EACH EYE DAILY, STARTED 5 YEARS AGO
     Route: 047
  11. LOBIVON [Concomitant]
     Active Substance: NEBIVOLOL HYDROCHLORIDE
     Indication: HYPERTENSION
     Dosage: 1 DF, QD
     Route: 048
  12. ZANIDIP [Concomitant]
     Active Substance: LERCANIDIPINE HYDROCHLORIDE
     Indication: HYPERTENSION
     Dosage: 1 DF, QD
     Route: 048
  13. CLOPIDOGREL [Concomitant]
     Active Substance: CLOPIDOGREL BISULFATE
     Indication: PRODUCT USED FOR UNKNOWN INDICATION
     Dosage: 1 DF, QD, SINCE A YEAR AND A HALF
     Route: 048
  14. CONTUMAX [Concomitant]
     Indication: PROPHYLAXIS
     Dosage: 1 DF, QD, SACHET, STARTED 5 YEARS AGO
     Route: 048
  15. PREGABALINE [Concomitant]
     Active Substance: PREGABALIN
     Indication: PRODUCT USED FOR UNKNOWN INDICATION
     Dosage: UNK
     Route: 065

REACTIONS (3)
  - Electrolyte imbalance [Recovered/Resolved]
  - Urinary tract infection [Unknown]
  - Weight decreased [Unknown]

NARRATIVE: CASE EVENT DATE: 20200925
